FAERS Safety Report 15590735 (Version 1)
Quarter: 2018Q4

REPORT INFORMATION
  Report Type: Spontaneous
  Country: IT (occurrence: IT)
  Receive Date: 20181106
  Receipt Date: 20181106
  Transmission Date: 20190205
  Serious: Yes (Other)
  Sender: FDA-Public Use
  Company Number: IT-PFIZER INC-2018447909

PATIENT
  Age: 78 Year
  Sex: Female

DRUGS (12)
  1. ZOFRAN [ONDANSETRON HYDROCHLORIDE] [Concomitant]
  2. ACIDO ZOLEDRONICO MYLAN [Concomitant]
     Dates: start: 20170315
  3. FASLODEX [Concomitant]
     Active Substance: FULVESTRANT
     Dates: start: 20171115, end: 20180207
  4. TAPENTADOL [Concomitant]
     Active Substance: TAPENTADOL
  5. EUTIROX [Concomitant]
     Active Substance: LEVOTHYROXINE SODIUM
  6. LOBIVON [Concomitant]
     Active Substance: NEBIVOLOL HYDROCHLORIDE
  7. DIBASE [Concomitant]
     Active Substance: CHOLECALCIFEROL
  8. LANSOPRAZOLE. [Concomitant]
     Active Substance: LANSOPRAZOLE
  9. LASIX + K [Concomitant]
     Active Substance: FUROSEMIDE\POTASSIUM CHLORIDE
  10. LEVOPRAID [LEVOSULPIRIDE] [Concomitant]
  11. IBRANCE [Suspect]
     Active Substance: PALBOCICLIB
     Indication: BREAST CANCER
     Dosage: 125 MG, 1X/DAY
     Route: 048
     Dates: start: 20171213, end: 20180307
  12. OLPRESS [Concomitant]
     Active Substance: OLMESARTAN MEDOXOMIL

REACTIONS (3)
  - Hypertransaminasaemia [Recovered/Resolved]
  - Thrombocytopenia [Recovered/Resolved]
  - Neutropenia [Recovered/Resolved]

NARRATIVE: CASE EVENT DATE: 20171227
